FAERS Safety Report 19087554 (Version 1)
Quarter: 2021Q2

REPORT INFORMATION
  Report Type: Report from Study
  Country: BR (occurrence: BR)
  Receive Date: 20210402
  Receipt Date: 20210402
  Transmission Date: 20210717
  Serious: Yes (Other)
  Sender: FDA-Public Use
  Company Number: BR-ASTRAZENECA-2021A224405

PATIENT
  Age: 20794 Day
  Sex: Female

DRUGS (1)
  1. FASENRA [Suspect]
     Active Substance: BENRALIZUMAB
     Indication: ASTHMA
     Dosage: 30 MG/ML, ONE DOSE EVERY 4 WEEKS FOR THE FIRST 3 APPLICATIONS AND THEN 1 DOSE EVERY 8 WEEKS
     Route: 058
     Dates: start: 20200807

REACTIONS (4)
  - Dyspnoea [Recovered/Resolved]
  - Pain [Recovered/Resolved]
  - Inappropriate schedule of product administration [Unknown]
  - Asthmatic crisis [Recovering/Resolving]

NARRATIVE: CASE EVENT DATE: 20210319
